FAERS Safety Report 8073038-3 (Version None)
Quarter: 2012Q1

REPORT INFORMATION
  Report Type: 
  Country: None (occurrence: None)
  Receive Date: 20120126
  Receipt Date: 20120118
  Transmission Date: 20120608
  Serious: Yes (Hospitalization)
  Sender: FDA-Public Use
  Company Number: AR-BRISTOL-MYERS SQUIBB COMPANY-15354509

PATIENT
  Age: 29 Year
  Sex: Female

DRUGS (5)
  1. IBUPROFEN [Concomitant]
     Route: 048
     Dates: start: 20090301
  2. ABATACEPT [Suspect]
     Indication: RHEUMATOID ARTHRITIS
     Dosage: LAST DOSE ON 13OCT10.INTERRUPTED ON 13OCT2010. RESTARTED 19NOV2010
     Route: 058
     Dates: start: 20100728
  3. FOLIC ACID [Concomitant]
     Route: 048
     Dates: start: 20070101
  4. OMEPRAZOLE [Concomitant]
     Dates: start: 20090301
  5. METHOTREXATE [Suspect]
     Indication: RHEUMATOID ARTHRITIS
     Dosage: INTERRUPTED ON 20-OCT-2010; RESTARTED 19NOV2010
     Route: 030
     Dates: start: 20100501, end: 20101020

REACTIONS (1)
  - CHOLECYSTITIS ACUTE [None]
